FAERS Safety Report 9547856 (Version 2)
Quarter: 2013Q3

REPORT INFORMATION
  Report Type: Spontaneous
  Country: US (occurrence: US)
  Receive Date: 20130924
  Receipt Date: 20130924
  Transmission Date: 20140515
  Serious: No
  Sender: FDA-Public Use
  Company Number: US-PURDUE-USA-2011-0078136

PATIENT
  Sex: Female

DRUGS (1)
  1. MS CONTIN TABLETS [Suspect]
     Indication: PAIN
     Dosage: 30 MG, TID
     Route: 048
     Dates: start: 201105, end: 20110928

REACTIONS (1)
  - Drug ineffective [Not Recovered/Not Resolved]
